FAERS Safety Report 7213674-7 (Version None)
Quarter: 2011Q1

REPORT INFORMATION
  Report Type: 
  Country: None (occurrence: None)
  Receive Date: 20110106
  Receipt Date: 20101228
  Transmission Date: 20110831
  Serious: Yes (Other)
  Sender: FDA-Public Use
  Company Number: US-JNJCH-2011000107

PATIENT
  Age: 54 Year
  Sex: Female
  Weight: 74.8 kg

DRUGS (1)
  1. LISTERINE TOTAL CARE PLUS WHITENING [Suspect]
     Indication: DENTAL DISORDER PROPHYLAXIS
     Dosage: TEXT:HALF CAPFUL TWICE A DAY
     Route: 048
     Dates: start: 20101221, end: 20101221

REACTIONS (3)
  - APPLICATION SITE PAIN [None]
  - APPLICATION SITE BURN [None]
  - LIP PAIN [None]
